FAERS Safety Report 15636241 (Version 3)
Quarter: 2019Q2

REPORT INFORMATION
  Report Type: Spontaneous
  Country: US (occurrence: US)
  Receive Date: 20181120
  Receipt Date: 20190611
  Transmission Date: 20190711
  Serious: No
  Sender: FDA-Public Use
  Company Number: US-ASTRAZENECA-2018SF27832

PATIENT
  Sex: Female

DRUGS (2)
  1. SYMBICORT [Suspect]
     Active Substance: BUDESONIDE\FORMOTEROL FUMARATE DIHYDRATE
     Indication: CHRONIC SINUSITIS
     Dosage: 2 PUFFS TWICE A DAY,WHEN SHE NEEDS TO AS REQUIRED
     Route: 055
  2. SYMBICORT [Suspect]
     Active Substance: BUDESONIDE\FORMOTEROL FUMARATE DIHYDRATE
     Indication: CHRONIC SINUSITIS
     Dosage: 160/4.5 MCG, 1 PUFF TWICE A DAY
     Route: 055

REACTIONS (8)
  - Device malfunction [Unknown]
  - Scoliosis [Unknown]
  - Oropharyngeal discomfort [Unknown]
  - Device issue [Unknown]
  - Osteoporosis [Unknown]
  - Intentional device misuse [Unknown]
  - Intentional product misuse [Unknown]
  - Off label use [Not Recovered/Not Resolved]
